FAERS Safety Report 18834426 (Version 14)
Quarter: 2021Q4

REPORT INFORMATION
  Report Type: Report from Study
  Country: MX (occurrence: MX)
  Receive Date: 20210203
  Receipt Date: 20211125
  Transmission Date: 20220303
  Serious: Yes (Hospitalization, Other)
  Sender: FDA-Public Use
  Company Number: MX-TAKEDA-MX201712103

PATIENT
  Age: 16 Year
  Sex: Male
  Weight: 24 kg

DRUGS (8)
  1. IDURSULFASE [Suspect]
     Active Substance: IDURSULFASE
     Indication: Mucopolysaccharidosis II
     Dosage: 12 MILLIGRAM, 1/WEEK
     Route: 042
     Dates: start: 20140506
  2. VALPROATE SODIUM [Concomitant]
     Active Substance: VALPROATE SODIUM
     Dosage: UNK
     Route: 065
  3. LEVETIRACETAM [Concomitant]
     Active Substance: LEVETIRACETAM
     Indication: Anticonvulsant drug level
     Dosage: 3 MILLILITER, 12 HOURS
     Route: 050
  4. VALPROATE MAGNESIUM [Concomitant]
     Active Substance: VALPROATE MAGNESIUM
     Indication: Product used for unknown indication
     Dosage: 2.5 ML, 2X/DAY:BID (EVERY 12 HOURS)
     Route: 048
  5. KEPPRA [Concomitant]
     Active Substance: LEVETIRACETAM
     Indication: Product used for unknown indication
     Dosage: 7 ML, 2X/DAY:BID (EVERY 12 HOURS)
     Route: 048
  6. SENNOSIDES [Concomitant]
     Active Substance: SENNOSIDES
     Indication: Drug abuse
     Dosage: 8.6 MILLIGRAM
     Route: 050
  7. TOPIRAMATE [Concomitant]
     Active Substance: TOPIRAMATE
     Indication: Product used for unknown indication
     Dosage: 50 ML, 2X/DAY:BID (EVERY 12 HOURS)
     Route: 048
  8. TOPIRAMATE [Concomitant]
     Active Substance: TOPIRAMATE
     Dosage: 150 MILLIGRAM, EVERY 12 HOURS
     Route: 050

REACTIONS (11)
  - Seizure [Recovering/Resolving]
  - Underweight [Unknown]
  - Dehydration [Unknown]
  - Mastication disorder [Unknown]
  - Dysphagia [Unknown]
  - Disease progression [Unknown]
  - Pyrexia [Recovering/Resolving]
  - SARS-CoV-2 test positive [Recovering/Resolving]
  - Therapy interrupted [Not Recovered/Not Resolved]
  - Product availability issue [Not Recovered/Not Resolved]
  - Product dose omission issue [Not Recovered/Not Resolved]

NARRATIVE: CASE EVENT DATE: 20210118
